FAERS Safety Report 24209951 (Version 1)
Quarter: 2024Q3

REPORT INFORMATION
  Report Type: Spontaneous
  Country: KR (occurrence: KR)
  Receive Date: 20240814
  Receipt Date: 20240814
  Transmission Date: 20241016
  Serious: Yes (Other)
  Sender: MERCK
  Company Number: KR-009507513-2408KOR003446

PATIENT
  Age: 48 Year
  Sex: Female

DRUGS (3)
  1. KEYTRUDA [Suspect]
     Active Substance: PEMBROLIZUMAB
     Dosage: 200 MILLIGRAM, 1 DAY, FORMULATION: VIAL
     Route: 042
     Dates: start: 20230711, end: 20230711
  2. CYCLOPHOSPHAMIDE [Suspect]
     Active Substance: CYCLOPHOSPHAMIDE
     Dosage: 972 MILLIGRAM, 1 DAY, FORMULATION: VIAL
     Dates: start: 20230711, end: 20230711
  3. DOXORUBICIN HYDROCHLORIDE [Suspect]
     Active Substance: DOXORUBICIN HYDROCHLORIDE
     Dosage: 97.2 MILLIGRAM, 1 DAY, FORMULATION: VIAL
     Dates: start: 20230711, end: 20230711

REACTIONS (1)
  - Leukopenia [Recovered/Resolved]

NARRATIVE: CASE EVENT DATE: 20230721
